FAERS Safety Report 20817574 (Version 1)
Quarter: 2022Q2

REPORT INFORMATION
  Report Type: Report from Study
  Country: CA (occurrence: CA)
  Receive Date: 20220512
  Receipt Date: 20220512
  Transmission Date: 20220721
  Serious: Yes (Other)
  Sender: FDA-Public Use
  Company Number: CA-ABBVIE-22K-028-4388752-00

PATIENT
  Age: 56 Year
  Sex: Female

DRUGS (1)
  1. RINVOQ [Suspect]
     Active Substance: UPADACITINIB
     Indication: Rheumatoid arthritis
     Route: 048
     Dates: start: 20210329

REACTIONS (7)
  - Sinus operation [Unknown]
  - Rhinorrhoea [Unknown]
  - Ear congestion [Unknown]
  - Sinus congestion [Unknown]
  - SARS-CoV-2 test positive [Unknown]
  - Weight increased [Unknown]
  - Peripheral swelling [Unknown]

NARRATIVE: CASE EVENT DATE: 20220201
